FAERS Safety Report 4281330-3 (Version None)
Quarter: 2004Q1

REPORT INFORMATION
  Report Type: 
  Country: None (occurrence: None)
  Receive Date: 20040112
  Receipt Date: 20030401
  Transmission Date: 20041129
  Serious: Yes (Hospitalization)
  Sender: FDA-Public Use
  Company Number: NSADSS2003016154

PATIENT
  Sex: Male
  Weight: 90.7194 kg

DRUGS (2)
  1. REOPRO [Suspect]
     Indication: DRUG USE FOR UNKNOWN INDICATION
     Dosage: , 1 IN 1 AS NECESSARY, INTRAVENOUS DRIP
     Route: 041
     Dates: start: 20030326, end: 20030326
  2. COUMADIN [Concomitant]

REACTIONS (2)
  - HAEMORRHAGE [None]
  - HYPOTENSION [None]
